FAERS Safety Report 9701228 (Version 2)
Quarter: 2013Q4

REPORT INFORMATION
  Report Type: Spontaneous
  Country: US (occurrence: US)
  Receive Date: 20131121
  Receipt Date: 20131121
  Transmission Date: 20140711
  Serious: No
  Sender: FDA-Public Use
  Company Number: US-GILEAD-2008-0015962

PATIENT
  Sex: Male
  Weight: 97.52 kg

DRUGS (13)
  1. LETAIRIS [Suspect]
     Indication: PULMONARY ARTERIAL HYPERTENSION
     Route: 048
     Dates: start: 20080104, end: 200802
  2. VIAGRA [Concomitant]
     Route: 048
  3. LASIX [Concomitant]
     Dosage: PRN
     Route: 048
  4. OXYGEN [Concomitant]
     Dosage: UD
     Route: 055
  5. NORVASC [Concomitant]
     Route: 048
  6. LYRICA [Concomitant]
     Dosage: PRN
     Route: 048
  7. PROGRAF [Concomitant]
     Route: 048
  8. LEVOXYL [Concomitant]
     Route: 048
  9. NOVOLOG 70/30 [Concomitant]
     Route: 058
  10. PREDNISONE [Concomitant]
     Route: 048
  11. PEPCID [Concomitant]
     Dosage: PRN
     Route: 048
  12. AMBIEN [Concomitant]
     Dosage: PRN
     Route: 048
  13. MAGNESIUM OXIDE [Concomitant]
     Route: 048

REACTIONS (1)
  - Liver function test abnormal [Unknown]
